FAERS Safety Report 17830837 (Version 2)
Quarter: 2020Q4

REPORT INFORMATION
  Report Type: Spontaneous
  Country: ES (occurrence: ES)
  Receive Date: 20200527
  Receipt Date: 20201201
  Transmission Date: 20210113
  Serious: Yes (Life-Threatening, Hospitalization, Other)
  Sender: FDA-Public Use
  Company Number: ES-JNJFOC-20200517344

PATIENT
  Age: 34 Year
  Sex: Male
  Weight: 60 kg

DRUGS (3)
  1. STELARA [Suspect]
     Active Substance: USTEKINUMAB
     Route: 058
     Dates: start: 20200413
  2. PREDNISONE. [Concomitant]
     Active Substance: PREDNISONE
     Route: 065
     Dates: start: 20200202
  3. STELARA [Suspect]
     Active Substance: USTEKINUMAB
     Indication: CROHN^S DISEASE
     Route: 042
     Dates: start: 20200204

REACTIONS (15)
  - Hepatic failure [Recovered/Resolved]
  - Septic shock [Unknown]
  - Cardiomyopathy [Recovered/Resolved]
  - Coagulopathy [Recovered/Resolved]
  - Polyneuropathy [Recovering/Resolving]
  - COVID-19 [Recovered/Resolved]
  - Sepsis [Recovered/Resolved]
  - Multiple organ dysfunction syndrome [Recovered/Resolved]
  - Cardio-respiratory arrest [Unknown]
  - Pyelonephritis acute [Recovered/Resolved]
  - Lactic acidosis [Recovered/Resolved]
  - Acute respiratory distress syndrome [Unknown]
  - Myopathy [Recovering/Resolving]
  - Bacterial infection [Recovered/Resolved]
  - Pulseless electrical activity [Recovered/Resolved]

NARRATIVE: CASE EVENT DATE: 202003
